FAERS Safety Report 4545407-7 (Version None)
Quarter: 2005Q1

REPORT INFORMATION
  Report Type: 
  Country: None (occurrence: None)
  Receive Date: 20050103
  Receipt Date: 20041220
  Transmission Date: 20050727
  Serious: Yes (Hospitalization, Other)
  Sender: FDA-Public Use
  Company Number: HQWYE106720DEC04

PATIENT
  Age: 76 Year
  Sex: Male

DRUGS (7)
  1. PANTOPRAZOLE (PANTOPRAZOLE,) [Suspect]
     Indication: GASTRITIS EROSIVE
  2. CLOPIDOGREL BISULFATE [Suspect]
     Indication: CAROTID ARTERY OCCLUSION
     Dosage: 75 MG 1X PER 1 DAY
  3. METHOTREXATE [Concomitant]
  4. IBUPROFEN [Concomitant]
  5. TIMOLOL MALEATE [Concomitant]
  6. RAMIPRIL [Concomitant]
  7. TORSEMIDE [Concomitant]

REACTIONS (5)
  - BLOOD LACTATE DEHYDROGENASE INCREASED [None]
  - DEEP VEIN THROMBOSIS [None]
  - HAEMOLYTIC URAEMIC SYNDROME [None]
  - SOMNOLENCE [None]
  - THROMBOCYTOPENIC PURPURA [None]
